FAERS Safety Report 8817565 (Version 1)
Quarter: 2012Q4

REPORT INFORMATION
  Report Type: 
  Country: US (occurrence: US)
  Receive Date: 20121004
  Receipt Date: 20121004
  Transmission Date: 20130627
  Serious: No
  Sender: FDA-Public Use
  Company Number: US-ASTRAZENECA-2012SE73530

PATIENT
  Age: 66 Year
  Sex: Female
  Weight: 90.7 kg

DRUGS (9)
  1. TOPROL XL [Suspect]
     Indication: HEART RATE INCREASED
     Dosage: 1 PLUS 1/2, TOTAL DAILY DOSE 150 MG
     Route: 048
     Dates: start: 2007, end: 201103
  2. TOPROL XL [Suspect]
     Indication: HYPERTENSION
     Dosage: 1 PLUS 1/2, TOTAL DAILY DOSE 150 MG
     Route: 048
     Dates: start: 2007, end: 201103
  3. TOPROL XL [Suspect]
     Indication: HEART RATE INCREASED
     Route: 048
     Dates: start: 201103, end: 201208
  4. TOPROL XL [Suspect]
     Indication: HYPERTENSION
     Route: 048
     Dates: start: 201103, end: 201208
  5. TOPROL XL [Suspect]
     Indication: HEART RATE INCREASED
     Dosage: GENERIC
     Route: 048
  6. TOPROL XL [Suspect]
     Indication: HYPERTENSION
     Dosage: GENERIC
     Route: 048
  7. TOPROL XL [Suspect]
     Indication: HEART RATE INCREASED
     Route: 048
  8. TOPROL XL [Suspect]
     Indication: HYPERTENSION
     Route: 048
  9. BYSTOLIC [Suspect]
     Route: 065

REACTIONS (6)
  - Cardiac flutter [Unknown]
  - Heart rate increased [Unknown]
  - Extrasystoles [Unknown]
  - Drug ineffective [Unknown]
  - Off label use [Unknown]
  - Therapeutic response unexpected [Unknown]
